FAERS Safety Report 24749361 (Version 2)
Quarter: 2025Q4

REPORT INFORMATION
  Report Type: Spontaneous
  Country: EU (occurrence: GF)
  Receive Date: 20241218
  Receipt Date: 20251016
  Transmission Date: 20260118
  Serious: Yes (Hospitalization)
  Sender: VIIV
  Company Number: EU-VIIV HEALTHCARE-GF2024EME157277

PATIENT
  Age: 27 Year
  Sex: Female

DRUGS (6)
  1. DOVATO [Suspect]
     Active Substance: DOLUTEGRAVIR SODIUM\LAMIVUDINE
     Indication: Product used for unknown indication
     Dosage: UNK
  2. VOCABRIA [Suspect]
     Active Substance: CABOTEGRAVIR SODIUM
     Indication: Product used for unknown indication
     Dosage: UNK
  3. VOCABRIA [Suspect]
     Active Substance: CABOTEGRAVIR SODIUM
  4. VOCABRIA [Suspect]
     Active Substance: CABOTEGRAVIR SODIUM
  5. RILPIVIRINE [Suspect]
     Active Substance: RILPIVIRINE
     Indication: Product used for unknown indication
     Dosage: UNK
  6. PREZISTA [Suspect]
     Active Substance: DARUNAVIR ETHANOLATE
     Indication: Product used for unknown indication
     Dosage: UNK 600X2

REACTIONS (9)
  - Complication of pregnancy [Unknown]
  - Morning sickness [Unknown]
  - Viral load increased [Recovering/Resolving]
  - Exposure during pregnancy [Unknown]
  - Treatment noncompliance [Unknown]
  - Labelled drug-drug interaction medication error [Unknown]
  - Extra dose administered [Unknown]
  - Drug monitoring procedure not performed [Unknown]
  - Product use in unapproved therapeutic environment [Unknown]

NARRATIVE: CASE EVENT DATE: 20241203
